FAERS Safety Report 8301141-9 (Version None)
Quarter: 2012Q2

REPORT INFORMATION
  Report Type: 
  Country: None (occurrence: None)
  Receive Date: 20120420
  Receipt Date: 20120414
  Transmission Date: 20120825
  Serious: Yes (Hospitalization)
  Sender: FDA-Public Use
  Company Number: SG-BAYER-2012-034359

PATIENT
  Age: 69 Year
  Sex: Male
  Weight: 60 kg

DRUGS (10)
  1. ISOSORBIDE DINITRATE [Concomitant]
  2. DILTIAZEM HCL [Concomitant]
     Dosage: 200 MG, UNK
  3. PROTON PUMP INHIBITORS [Concomitant]
  4. AMIODARONE HCL [Concomitant]
     Dosage: 200 MG, UNK
  5. XARELTO [Suspect]
     Indication: ATRIAL FIBRILLATION
     Dosage: 15 MG, QD
     Dates: start: 20120401
  6. XARELTO [Suspect]
     Indication: CEREBROVASCULAR ACCIDENT PROPHYLAXIS
     Dosage: 20 MG, QD
     Route: 048
     Dates: start: 20120326, end: 20120403
  7. DIGOXIN [Concomitant]
     Dosage: 62.5 ?G, UNK
  8. ATORVASTATIN [Concomitant]
     Dosage: 20 MG, UNK
  9. ENALAPRIL MALEATE [Concomitant]
     Dosage: 5 MG, UNK
  10. VASTAREL [Concomitant]
     Dosage: 20 MG, UNK

REACTIONS (5)
  - OCCULT BLOOD POSITIVE [None]
  - MELAENA [None]
  - ANAEMIA [None]
  - HAEMOPTYSIS [None]
  - DYSPNOEA [None]
